FAERS Safety Report 20747078 (Version 7)
Quarter: 2023Q4

REPORT INFORMATION
  Report Type: Spontaneous
  Country: US (occurrence: US)
  Receive Date: 20220425
  Receipt Date: 20231222
  Transmission Date: 20240110
  Serious: No
  Sender: FDA-Public Use
  Company Number: US-PFIZER INC-2018342441

PATIENT
  Age: 78 Year
  Sex: Female
  Weight: 53 kg

DRUGS (1)
  1. PREMPRO [Suspect]
     Active Substance: ESTROGENS, CONJUGATED\MEDROXYPROGESTERONE ACETATE
     Dosage: UNK
     Dates: end: 2023

REACTIONS (2)
  - Pain [Unknown]
  - Dental caries [Unknown]
